FAERS Safety Report 13029082 (Version 3)
Quarter: 2017Q1

REPORT INFORMATION
  Report Type: Spontaneous
  Country: IT (occurrence: IT)
  Receive Date: 20161215
  Receipt Date: 20170228
  Transmission Date: 20170428
  Serious: Yes (Other)
  Sender: FDA-Public Use
  Company Number: IT-BAXTER-2016BAX061937

PATIENT
  Age: 68 Year
  Sex: Male
  Weight: 59 kg

DRUGS (21)
  1. ALIMTA [Suspect]
     Active Substance: PEMETREXED DISODIUM
     Dosage: PEMETREXED BAGS IN BAXTER SODIUM CHLORIDE 0.9%
     Route: 042
     Dates: start: 20160719
  2. DELTACORTENE [Concomitant]
     Active Substance: PREDNISONE
     Indication: PRODUCT USED FOR UNKNOWN INDICATION
     Route: 065
  3. CITALOPRAM [Concomitant]
     Active Substance: CITALOPRAM HYDROBROMIDE
     Indication: PRODUCT USED FOR UNKNOWN INDICATION
     Route: 065
  4. SODIO CLORURO BAXTER S.P.A. 0,9% [Suspect]
     Active Substance: SODIUM CHLORIDE
     Indication: MEDICATION DILUTION
     Route: 042
     Dates: start: 20160510
  5. ALIMTA [Suspect]
     Active Substance: PEMETREXED DISODIUM
     Dosage: PEMETREXED BAGS IN BAXTER SODIUM CHLORIDE 0.9%
     Route: 042
     Dates: start: 20160601
  6. SPIRIVA RESPIMAT [Concomitant]
     Active Substance: TIOTROPIUM BROMIDE
     Indication: PRODUCT USED FOR UNKNOWN INDICATION
     Route: 065
  7. SODIO CLORURO BAXTER S.P.A. 0,9% [Suspect]
     Active Substance: SODIUM CHLORIDE
     Route: 042
     Dates: start: 20160601
  8. ONDANSETRON [Suspect]
     Active Substance: ONDANSETRON
     Indication: PRODUCT USED FOR UNKNOWN INDICATION
     Route: 042
     Dates: start: 20160510, end: 20160809
  9. SODIO CLORURO BAXTER S.P.A. 0,9% [Suspect]
     Active Substance: SODIUM CHLORIDE
     Route: 042
     Dates: start: 20160719
  10. SODIO CLORURO BAXTER S.P.A. 0,9% [Suspect]
     Active Substance: SODIUM CHLORIDE
     Route: 042
     Dates: start: 20160809
  11. ALIMTA [Suspect]
     Active Substance: PEMETREXED DISODIUM
     Indication: PRODUCT USED FOR UNKNOWN INDICATION
     Dosage: PEMETREXED BAGS IN BAXTER SODIUM CHLORIDE 0.9%
     Route: 042
     Dates: start: 20160510
  12. ALIMTA [Suspect]
     Active Substance: PEMETREXED DISODIUM
     Dosage: ONLY ALIMTA WAS GIVEN
     Route: 042
     Dates: start: 20160628
  13. DEXAMETHASONE. [Suspect]
     Active Substance: DEXAMETHASONE
     Indication: PRODUCT USED FOR UNKNOWN INDICATION
     Route: 042
     Dates: start: 20160510, end: 20160809
  14. RANITIDINE. [Suspect]
     Active Substance: RANITIDINE
     Indication: PRODUCT USED FOR UNKNOWN INDICATION
     Route: 042
     Dates: start: 20160510, end: 20160809
  15. SERETIDE [Concomitant]
     Active Substance: FLUTICASONE PROPIONATE\SALMETEROL XINAFOATE
     Indication: PRODUCT USED FOR UNKNOWN INDICATION
     Route: 065
  16. DEPAKIN [Concomitant]
     Active Substance: VALPROATE SODIUM
     Indication: PRODUCT USED FOR UNKNOWN INDICATION
     Route: 065
  17. DIFLUCAN [Concomitant]
     Active Substance: FLUCONAZOLE
     Indication: PRODUCT USED FOR UNKNOWN INDICATION
     Route: 065
  18. ALIMTA [Suspect]
     Active Substance: PEMETREXED DISODIUM
     Dosage: PEMETREXED BAGS IN BAXTER SODIUM CHLORIDE 0.9%
     Route: 042
     Dates: start: 20160809
  19. CARBOPLATIN. [Suspect]
     Active Substance: CARBOPLATIN
     Indication: PRODUCT USED FOR UNKNOWN INDICATION
     Route: 042
     Dates: start: 20160510, end: 20160628
  20. DOBETIN [Concomitant]
     Active Substance: CYANOCOBALAMIN
     Indication: PRODUCT USED FOR UNKNOWN INDICATION
     Route: 065
  21. LANSOPRAZOLE. [Concomitant]
     Active Substance: LANSOPRAZOLE
     Indication: PRODUCT USED FOR UNKNOWN INDICATION
     Route: 065

REACTIONS (3)
  - Leukopenia [Recovered/Resolved]
  - Anaemia [Recovered/Resolved]
  - Neutropenia [Recovered/Resolved]

NARRATIVE: CASE EVENT DATE: 20160823
